FAERS Safety Report 24785856 (Version 1)
Quarter: 2024Q4

REPORT INFORMATION
  Report Type: Spontaneous
  Country: US (occurrence: US)
  Receive Date: 20241229
  Receipt Date: 20241229
  Transmission Date: 20250115
  Serious: No
  Sender: SANOFI AVENTIS
  Company Number: US-SA-2024SA383160

PATIENT
  Sex: Female
  Weight: 50.45 kg

DRUGS (6)
  1. DUPIXENT [Suspect]
     Active Substance: DUPILUMAB
     Dosage: 300 MG, QOW
  2. ADDERALL [Concomitant]
     Active Substance: AMPHETAMINE ASPARTATE\AMPHETAMINE SULFATE\DEXTROAMPHETAMINE SACCHARATE\DEXTROAMPHETAMINE SULFATE
  3. HYDROCORTISONE [Concomitant]
     Active Substance: HYDROCORTISONE
  4. TACROLIMUS [Concomitant]
     Active Substance: TACROLIMUS
  5. PIMECROLIMUS [Concomitant]
     Active Substance: PIMECROLIMUS
  6. TRETINOIN [Concomitant]
     Active Substance: TRETINOIN

REACTIONS (1)
  - Hypersensitivity [Unknown]
